FAERS Safety Report 6034022-4 (Version None)
Quarter: 2009Q1

REPORT INFORMATION
  Report Type: 
  Country: None (occurrence: None)
  Receive Date: 20090112
  Receipt Date: 20090106
  Transmission Date: 20090719
  Serious: Yes (Hospitalization)
  Sender: FDA-Public Use
  Company Number: US-BIOGENIDEC-2008BI017914

PATIENT
  Age: 50 Year
  Sex: Female
  Weight: 54 kg

DRUGS (6)
  1. AVONEX [Suspect]
     Indication: MULTIPLE SCLEROSIS
     Route: 030
     Dates: start: 20000801, end: 20020823
  2. AVONEX [Suspect]
     Route: 030
     Dates: start: 20080802
  3. VANCOMYCIN HYDROCHLORIDE [Concomitant]
     Indication: ANTIBIOTIC PROPHYLAXIS
     Route: 042
  4. HEPARIN [Concomitant]
     Indication: THROMBOSIS PROPHYLAXIS
     Route: 058
  5. NEURONTIN [Concomitant]
     Indication: MULTIPLE SCLEROSIS
  6. TOPAMAX [Concomitant]
     Indication: MIGRAINE

REACTIONS (5)
  - DYSPNOEA [None]
  - FATIGUE [None]
  - LUNG ADENOCARCINOMA STAGE I [None]
  - ORAL HERPES [None]
  - STRESS [None]
